FAERS Safety Report 21844119 (Version 1)
Quarter: 2023Q1

REPORT INFORMATION
  Report Type: Report from Study
  Country: US (occurrence: US)
  Receive Date: 20230110
  Receipt Date: 20230110
  Transmission Date: 20230418
  Serious: No
  Sender: FDA-Public Use
  Company Number: US-ABBVIE-4227526

PATIENT
  Sex: Female

DRUGS (8)
  1. RINVOQ [Suspect]
     Active Substance: UPADACITINIB
     Indication: Rheumatoid arthritis
     Route: 048
     Dates: start: 20220309
  2. MELOXICAM [Concomitant]
     Active Substance: MELOXICAM
     Indication: Product used for unknown indication
  3. PREDNISONE TAB 2.5MG [Concomitant]
     Indication: Product used for unknown indication
  4. METHOTREXATE [Concomitant]
     Active Substance: METHOTREXATE
     Indication: Product used for unknown indication
  5. MAGNESIUM TAB 250MG [Concomitant]
     Indication: Product used for unknown indication
  6. IRON TAB 65MG [Concomitant]
     Indication: Product used for unknown indication
  7. FOLIC ACID TAB 400MCG [Concomitant]
     Indication: Product used for unknown indication
  8. MULTIVITAMIN CAP [Concomitant]
     Indication: Product used for unknown indication

REACTIONS (1)
  - Rheumatoid arthritis [Unknown]
